FAERS Safety Report 4558651-X (Version None)
Quarter: 2005Q1

REPORT INFORMATION
  Report Type: 
  Country: None (occurrence: None)
  Receive Date: 20050119
  Receipt Date: 20050106
  Transmission Date: 20050727
  Serious: Yes (Disabling, Other)
  Sender: FDA-Public Use
  Company Number: 2004119995

PATIENT
  Sex: Female
  Weight: 103.8737 kg

DRUGS (10)
  1. NEURONTIN [Suspect]
     Indication: ILL-DEFINED DISORDER
     Dosage: 3000 MG (600 MG, 5 IN 1 D), ORAL
     Route: 048
  2. DELTASONE [Suspect]
     Indication: ILL-DEFINED DISORDER
     Dosage: ORAL
     Route: 048
     Dates: start: 19970101
  3. LEVOTHYROXINE SODIUM [Concomitant]
  4. ROSUVASTATIN (ROSUVASTATIN) [Concomitant]
  5. FOLIC ACID [Concomitant]
  6. TRAZODONE (TRAZODONE) [Concomitant]
  7. WARFARIN SODIUM [Concomitant]
  8. INFLIXIMAB (INFLIXIMAB) [Concomitant]
  9. RANITIDINE [Concomitant]
  10. AMITRIPTYLINE HCL [Concomitant]

REACTIONS (5)
  - ABDOMINAL OPERATION [None]
  - FALL [None]
  - LIMB OPERATION [None]
  - POST PROCEDURAL COMPLICATION [None]
  - TREMOR [None]
